FAERS Safety Report 4425019-6 (Version None)
Quarter: 2004Q3

REPORT INFORMATION
  Report Type: 
  Country: None (occurrence: None)
  Receive Date: 20040813
  Receipt Date: 20040805
  Transmission Date: 20050211
  Serious: Yes (Hospitalization)
  Sender: FDA-Public Use
  Company Number: US-JNJFOC-20040801921

PATIENT
  Age: 78 Year
  Sex: Male

DRUGS (4)
  1. DURAGESIC [Suspect]
     Indication: CANCER PAIN
     Route: 062
  2. PERCOCET [Concomitant]
     Route: 049
  3. PERCOCET [Concomitant]
     Indication: CANCER PAIN
     Dosage: 10/325 MG, 3 IN 1 DAY
     Route: 049
  4. TYLENOL W/ CODEINE NO. 3 [Concomitant]
     Route: 049

REACTIONS (5)
  - ABNORMAL BEHAVIOUR [None]
  - AGGRESSION [None]
  - INTESTINAL OBSTRUCTION [None]
  - MALIGNANT NEOPLASM PROGRESSION [None]
  - MEDICATION ERROR [None]
